FAERS Safety Report 4958719-X (Version None)
Quarter: 2006Q1

REPORT INFORMATION
  Report Type: 
  Country: None (occurrence: None)
  Receive Date: 20060330
  Receipt Date: 20060327
  Transmission Date: 20060701
  Serious: Yes (Hospitalization, Disabling, Other)
  Sender: FDA-Public Use
  Company Number: GB-MERCK-0603GBR00133

PATIENT
  Age: 72 Year
  Sex: Male
  Weight: 81 kg

DRUGS (5)
  1. SINGULAIR [Suspect]
     Indication: ASTHMA
     Route: 048
     Dates: start: 20050601, end: 20051101
  2. PREDNISOLONE [Concomitant]
     Route: 048
     Dates: start: 20030101
  3. RISEDRONATE SODIUM [Concomitant]
     Indication: OSTEOPOROSIS
     Route: 048
     Dates: start: 20050601
  4. ALBUTEROL [Concomitant]
     Indication: ASTHMA
     Route: 055
     Dates: start: 19900101
  5. FLUTICASONE PROPIONATE AND SALMETEROL XINAFOATE [Concomitant]
     Indication: ASTHMA
     Route: 055
     Dates: start: 20040101

REACTIONS (6)
  - ALLERGIC GRANULOMATOUS ANGIITIS [None]
  - CHILLS [None]
  - MUSCLE SPASMS [None]
  - PARAESTHESIA [None]
  - RASH GENERALISED [None]
  - SENSORY LOSS [None]
